FAERS Safety Report 6132650-9 (Version None)
Quarter: 2009Q1

REPORT INFORMATION
  Report Type: 
  Country: None (occurrence: None)
  Receive Date: 20090324
  Receipt Date: 20090312
  Transmission Date: 20090719
  Serious: Yes (Other)
  Sender: FDA-Public Use
  Company Number: A-US2009-24147

PATIENT
  Age: 6 Month
  Sex: Female
  Weight: 6.8 kg

DRUGS (9)
  1. TRACLEER [Suspect]
     Indication: PULMONARY ARTERIAL HYPERTENSION
     Dosage: 15.6 MG, BID, ORAL
     Route: 048
     Dates: start: 20081211, end: 20090115
  2. REVATIO [Concomitant]
  3. DIGOXIN [Concomitant]
  4. PREVACID [Concomitant]
  5. CHLOROTHIAZIDE [Concomitant]
  6. SPIRONOLACTONE [Concomitant]
  7. SODIUM CHLORIDE 0.9% [Concomitant]
  8. POLY-VI-SOL (VITAMINS NOS) [Concomitant]
  9. SYNAGIS [Concomitant]

REACTIONS (5)
  - ASPIRATION [None]
  - CHOLELITHIASIS [None]
  - DRUG INEFFECTIVE [None]
  - HEPATITIS [None]
  - HEPATOMEGALY [None]
